FAERS Safety Report 7250934-8 (Version None)
Quarter: 2011Q1

REPORT INFORMATION
  Report Type: 
  Country: None (occurrence: None)
  Receive Date: 20110128
  Receipt Date: 20110124
  Transmission Date: 20110831
  Serious: Yes (Hospitalization, Congenital Anomaly)
  Sender: FDA-Public Use
  Company Number: A0909600A

PATIENT
  Sex: Male
  Weight: 1 kg

DRUGS (2)
  1. PAROXETINE HCL [Suspect]
     Route: 064
  2. PAXIL CR [Suspect]
     Route: 064

REACTIONS (5)
  - DRUG EXPOSURE DURING PREGNANCY [None]
  - PULMONARY VALVE STENOSIS [None]
  - PATENT DUCTUS ARTERIOSUS [None]
  - PREMATURE BABY [None]
  - DEXTROCARDIA [None]
